FAERS Safety Report 14108292 (Version 3)
Quarter: 2017Q4

REPORT INFORMATION
  Report Type: Spontaneous
  Country: US (occurrence: US)
  Receive Date: 20171019
  Receipt Date: 20171206
  Transmission Date: 20180321
  Serious: Yes (Other)
  Sender: FDA-Public Use
  Company Number: US-PFIZER INC-2017449693

PATIENT
  Age: 62 Year
  Sex: Female
  Weight: 81 kg

DRUGS (1)
  1. XELJANZ [Suspect]
     Active Substance: TOFACITINIB CITRATE
     Indication: RHEUMATOID ARTHRITIS
     Dosage: 5 MG, 2X/DAY
     Route: 048

REACTIONS (14)
  - Drug hypersensitivity [Not Recovered/Not Resolved]
  - Anaphylactic shock [Unknown]
  - Drug effect incomplete [Unknown]
  - Pelvic mass [Not Recovered/Not Resolved]
  - Dyspepsia [Unknown]
  - Pharyngeal oedema [Unknown]
  - Feeling abnormal [Unknown]
  - Dysgeusia [Unknown]
  - Barrett^s oesophagus [Unknown]
  - Goitre [Unknown]
  - Dysphagia [Unknown]
  - Malaise [Unknown]
  - Impaired gastric emptying [Not Recovered/Not Resolved]
  - Weight decreased [Unknown]

NARRATIVE: CASE EVENT DATE: 201704
